FAERS Safety Report 5715479-2 (Version None)
Quarter: 2008Q2

REPORT INFORMATION
  Report Type: 
  Country: None (occurrence: None)
  Receive Date: 20080422
  Receipt Date: 20080408
  Transmission Date: 20081010
  Serious: Yes (Other)
  Sender: FDA-Public Use
  Company Number: 163-21880-08030215

PATIENT
  Age: 83 Year
  Sex: Male

DRUGS (3)
  1. REVLIMID [Suspect]
     Indication: MULTIPLE MYELOMA
     Dosage: X21 DAYS EVERY 28 DAYS, ORAL; 5MG - 20MG, ORL; X21 DAYS EVERY 28 DAYS, ORAL
     Route: 048
     Dates: start: 20070417, end: 20070501
  2. REVLIMID [Suspect]
     Indication: MULTIPLE MYELOMA
     Dosage: X21 DAYS EVERY 28 DAYS, ORAL; 5MG - 20MG, ORL; X21 DAYS EVERY 28 DAYS, ORAL
     Route: 048
     Dates: start: 20070615, end: 20071201
  3. REVLIMID [Suspect]
     Indication: MULTIPLE MYELOMA
     Dosage: X21 DAYS EVERY 28 DAYS, ORAL; 5MG - 20MG, ORL; X21 DAYS EVERY 28 DAYS, ORAL
     Route: 048
     Dates: start: 20080201

REACTIONS (6)
  - ANOREXIA [None]
  - DISEASE PROGRESSION [None]
  - FATIGUE [None]
  - HEPATIC FUNCTION ABNORMAL [None]
  - MULTIPLE MYELOMA [None]
  - VISION BLURRED [None]
